FAERS Safety Report 16976544 (Version 9)
Quarter: 2020Q4

REPORT INFORMATION
  Report Type: Spontaneous
  Country: US (occurrence: US)
  Receive Date: 20191030
  Receipt Date: 20201221
  Transmission Date: 20210113
  Serious: Yes (Hospitalization, Other)
  Sender: FDA-Public Use
  Company Number: US-BIOCODEX SA-201901248

PATIENT
  Age: 3 Year
  Sex: Female
  Weight: 15.5 kg

DRUGS (49)
  1. KEPPRA [Concomitant]
     Active Substance: LEVETIRACETAM
     Indication: PRODUCT USED FOR UNKNOWN INDICATION
     Route: 065
  2. LORAZEPAM. [Concomitant]
     Active Substance: LORAZEPAM
     Route: 065
  3. MELATONIN [Concomitant]
     Active Substance: MELATONIN
     Route: 065
  4. MIDAZOLAM. [Concomitant]
     Active Substance: MIDAZOLAM
     Route: 065
  5. POLYETHYLENE [Concomitant]
     Active Substance: HIGH DENSITY POLYETHYLENE
     Route: 065
  6. VITAMIN C GUMMIE [Concomitant]
     Indication: PRODUCT USED FOR UNKNOWN INDICATION
     Route: 065
  7. ONFI [Concomitant]
     Active Substance: CLOBAZAM
     Indication: SEVERE MYOCLONIC EPILEPSY OF INFANCY
     Route: 065
  8. IBUPROFEN. [Concomitant]
     Active Substance: IBUPROFEN
     Indication: PRODUCT USED FOR UNKNOWN INDICATION
     Route: 065
  9. IBUPROFEN. [Concomitant]
     Active Substance: IBUPROFEN
     Route: 065
  10. MELATONIN [Concomitant]
     Active Substance: MELATONIN
     Route: 065
  11. MELATONIN [Concomitant]
     Active Substance: MELATONIN
     Route: 065
  12. IBUPROFEN CHILDRENS [Concomitant]
     Active Substance: IBUPROFEN
     Indication: PRODUCT USED FOR UNKNOWN INDICATION
     Route: 065
  13. DIACOMIT [Suspect]
     Active Substance: STIRIPENTOL
     Dosage: 500MG, TWICE A DAY.
     Route: 048
  14. MELATONIN [Concomitant]
     Active Substance: MELATONIN
     Route: 065
  15. MIDAZOLAM. [Concomitant]
     Active Substance: MIDAZOLAM
     Indication: PRODUCT USED FOR UNKNOWN INDICATION
     Route: 065
  16. POLYETHYLENE [Concomitant]
     Active Substance: HIGH DENSITY POLYETHYLENE
     Route: 065
  17. POLYETHYLENE [Concomitant]
     Active Substance: HIGH DENSITY POLYETHYLENE
     Route: 065
  18. POLYETHYLENE GLYCOL [Concomitant]
     Active Substance: POLYETHYLENE GLYCOLS
     Indication: PRODUCT USED FOR UNKNOWN INDICATION
     Route: 065
  19. DIACOMIT [Suspect]
     Active Substance: STIRIPENTOL
     Dosage: 500MG TWICE A DAY
     Route: 065
  20. EPIDIOLEX [Concomitant]
     Active Substance: CANNABIDIOL
     Indication: PRODUCT USED FOR UNKNOWN INDICATION
     Route: 065
  21. IBUPROFEN. [Concomitant]
     Active Substance: IBUPROFEN
     Route: 065
  22. IBUPROFEN. [Concomitant]
     Active Substance: IBUPROFEN
     Route: 065
  23. LORAZEPAM. [Concomitant]
     Active Substance: LORAZEPAM
     Route: 065
  24. LORAZEPAM. [Concomitant]
     Active Substance: LORAZEPAM
     Route: 065
  25. MELATONIN [Concomitant]
     Active Substance: MELATONIN
     Indication: PRODUCT USED FOR UNKNOWN INDICATION
     Route: 065
  26. MELATONIN [Concomitant]
     Active Substance: MELATONIN
     Route: 065
  27. MELATONIN [Concomitant]
     Active Substance: MELATONIN
     Route: 065
  28. MIDAZOLAM. [Concomitant]
     Active Substance: MIDAZOLAM
     Route: 065
  29. MIDAZOLAM. [Concomitant]
     Active Substance: MIDAZOLAM
     Route: 065
  30. POLYETHYLENE [Concomitant]
     Active Substance: HIGH DENSITY POLYETHYLENE
     Route: 065
  31. POLYETHYLENE [Concomitant]
     Active Substance: HIGH DENSITY POLYETHYLENE
     Route: 065
  32. DIASTAT [Concomitant]
     Active Substance: DIAZEPAM
     Indication: PRODUCT USED FOR UNKNOWN INDICATION
     Route: 065
  33. IBUPROFEN. [Concomitant]
     Active Substance: IBUPROFEN
     Route: 065
  34. LORAZEPAM. [Concomitant]
     Active Substance: LORAZEPAM
     Indication: PRODUCT USED FOR UNKNOWN INDICATION
     Route: 065
  35. POLYETHYLENE [Concomitant]
     Active Substance: HIGH DENSITY POLYETHYLENE
     Indication: PRODUCT USED FOR UNKNOWN INDICATION
     Route: 065
  36. CHILDRENS TYLENOL [Concomitant]
     Active Substance: ACETAMINOPHEN
     Indication: PRODUCT USED FOR UNKNOWN INDICATION
     Route: 065
  37. IBUPROFEN. [Concomitant]
     Active Substance: IBUPROFEN
     Route: 065
  38. LORAZEPAM. [Concomitant]
     Active Substance: LORAZEPAM
     Route: 065
  39. MIDAZOLAM. [Concomitant]
     Active Substance: MIDAZOLAM
     Route: 065
  40. DIACOMIT [Suspect]
     Active Substance: STIRIPENTOL
     Dosage: 500MG TWICE A DAY
     Route: 048
  41. MELATONIN [Concomitant]
     Active Substance: MELATONIN
     Route: 065
  42. MIDAZOLAM. [Concomitant]
     Active Substance: MIDAZOLAM
     Route: 065
  43. MIDAZOLAM. [Concomitant]
     Active Substance: MIDAZOLAM
     Route: 065
  44. TYLENOL [Concomitant]
     Active Substance: ACETAMINOPHEN
     Indication: PRODUCT USED FOR UNKNOWN INDICATION
     Route: 065
  45. DIACOMIT [Suspect]
     Active Substance: STIRIPENTOL
     Indication: SEVERE MYOCLONIC EPILEPSY OF INFANCY
     Dosage: 750 TWICE A DAY
     Route: 065
     Dates: start: 20190823
  46. DIACOMIT [Suspect]
     Active Substance: STIRIPENTOL
     Indication: FOCAL DYSCOGNITIVE SEIZURES
     Dosage: 750 TWICE A DAY
     Route: 065
  47. LORAZEPAM. [Concomitant]
     Active Substance: LORAZEPAM
     Route: 065
  48. MIDAZOLAM. [Concomitant]
     Active Substance: MIDAZOLAM
     Route: 065
  49. POLYETHYLENE GLYCOL [Concomitant]
     Active Substance: POLYETHYLENE GLYCOLS
     Route: 065

REACTIONS (9)
  - Psychomotor hyperactivity [Unknown]
  - Alopecia [Unknown]
  - Product dose omission issue [Unknown]
  - Decreased appetite [Unknown]
  - Dysphagia [Unknown]
  - Product use in unapproved indication [Unknown]
  - Product use complaint [Unknown]
  - Seizure [Unknown]
  - Dyskinesia [Unknown]

NARRATIVE: CASE EVENT DATE: 20190823
